FAERS Safety Report 16255679 (Version 1)
Quarter: 2019Q2

REPORT INFORMATION
  Report Type: Spontaneous
  Country: US (occurrence: US)
  Receive Date: 20190430
  Receipt Date: 20190430
  Transmission Date: 20190711
  Serious: No
  Sender: FDA-Public Use
  Company Number: US-PERRIGO-19US004585

PATIENT
  Sex: Male
  Weight: 102.04 kg

DRUGS (2)
  1. OMEPRAZOLE AND SODIUM BICARBONATE [Suspect]
     Active Substance: OMEPRAZOLE\SODIUM BICARBONATE
     Dosage: 1 CAPSULE, QD FOR 14 DAYS, EVERY 1.5 TO 2 WEEKS
     Route: 048
     Dates: start: 2016
  2. OMEPRAZOLE AND SODIUM BICARBONATE [Suspect]
     Active Substance: OMEPRAZOLE\SODIUM BICARBONATE
     Indication: DYSPEPSIA
     Dosage: 2 CAPSULES, SINGLE
     Route: 048
     Dates: start: 2016, end: 2016

REACTIONS (2)
  - Incorrect dose administered [Recovered/Resolved]
  - Inappropriate schedule of product administration [Not Recovered/Not Resolved]

NARRATIVE: CASE EVENT DATE: 2016
